FAERS Safety Report 14651506 (Version 1)
Quarter: 2018Q1

REPORT INFORMATION
  Report Type: Spontaneous
  Country: FR (occurrence: FR)
  Receive Date: 20180317
  Receipt Date: 20180317
  Transmission Date: 20180509
  Serious: Yes (Congenital Anomaly)
  Sender: FDA-Public Use
  Company Number: FR-SUN PHARMACEUTICAL INDUSTRIES LTD-2018RR-166825

PATIENT
  Sex: Male
  Weight: 3.63 kg

DRUGS (1)
  1. SOTALOL. [Suspect]
     Active Substance: SOTALOL
     Indication: VENTRICULAR ARRHYTHMIA
     Dosage: 80 MG, DAILY
     Route: 064
     Dates: start: 20170423, end: 201711

REACTIONS (1)
  - Ear malformation [Recovered/Resolved with Sequelae]

NARRATIVE: CASE EVENT DATE: 20180118
